FAERS Safety Report 13158978 (Version 2)
Quarter: 2017Q1

REPORT INFORMATION
  Report Type: Spontaneous
  Country: AT (occurrence: AT)
  Receive Date: 20170127
  Receipt Date: 20170301
  Transmission Date: 20170428
  Serious: Yes (Life-Threatening, Other)
  Sender: FDA-Public Use
  Company Number: AT-GLAXOSMITHKLINE-AT2017GSK011092

PATIENT
  Age: 77 Year
  Sex: Female

DRUGS (11)
  1. PRADAXA [Concomitant]
     Active Substance: DABIGATRAN ETEXILATE MESYLATE
  2. TAXOL [Concomitant]
     Active Substance: PACLITAXEL
     Dosage: UNK
     Dates: start: 20161229
  3. PASPERTIN [Concomitant]
     Active Substance: METOCLOPRAMIDE HYDROCHLORIDE
  4. ULSAL [Suspect]
     Active Substance: RANITIDINE HYDROCHLORIDE
     Indication: PRODUCT USED FOR UNKNOWN INDICATION
     Dosage: 50 MG, UNK
     Route: 042
  5. PANTOPRAZOLE [Concomitant]
     Active Substance: PANTOPRAZOLE SODIUM
  6. LISIHEXAL [Concomitant]
     Active Substance: LISINOPRIL
  7. ITERIUM [Concomitant]
     Active Substance: RILMENIDINE
  8. SIRDALUD [Concomitant]
     Active Substance: TIZANIDINE
  9. CARVEDILOL. [Concomitant]
     Active Substance: CARVEDILOL
  10. TRITTICO [Concomitant]
     Active Substance: TRAZODONE HYDROCHLORIDE
  11. NICOLAN (NICORANDIL) [Concomitant]

REACTIONS (6)
  - Cardiac disorder [Recovered/Resolved]
  - Vomiting [Recovered/Resolved]
  - Respiratory distress [Recovered/Resolved]
  - Dyspnoea [Recovered/Resolved]
  - Flushing [Recovered/Resolved]
  - Hypersensitivity [Recovered/Resolved]

NARRATIVE: CASE EVENT DATE: 20161229
